FAERS Safety Report 9149699 (Version 1)
Quarter: 2013Q1

REPORT INFORMATION
  Report Type: Spontaneous
  Country: US (occurrence: US)
  Receive Date: 20130308
  Receipt Date: 20130308
  Transmission Date: 20140127
  Serious: No
  Sender: FDA-Public Use
  Company Number: US-ENDO PHARMACEUTICALS INC.-OPCR20120429

PATIENT
  Age: 38 Year
  Sex: Male
  Weight: 95.34 kg

DRUGS (1)
  1. OPANA ER 30MG [Suspect]
     Indication: PAIN
     Route: 048
     Dates: start: 20120406, end: 20120419

REACTIONS (4)
  - Renal pain [Recovering/Resolving]
  - Dysuria [Recovering/Resolving]
  - Abdominal discomfort [Recovering/Resolving]
  - Headache [Recovering/Resolving]
